FAERS Safety Report 16690556 (Version 2)
Quarter: 2019Q3

REPORT INFORMATION
  Report Type: Spontaneous
  Country: KR (occurrence: KR)
  Receive Date: 20190810
  Receipt Date: 20190813
  Transmission Date: 20191004
  Serious: Yes (Hospitalization)
  Sender: FDA-Public Use
  Company Number: KR-JNJFOC-20190800452

PATIENT
  Age: 15 Year
  Sex: Female

DRUGS (1)
  1. TYLENOL ER 650MG TABLET [Suspect]
     Active Substance: ACETAMINOPHEN
     Indication: PRODUCT USED FOR UNKNOWN INDICATION
     Dosage: 13 G (650 MG, 20 TABLETS)
     Route: 048

REACTIONS (4)
  - Procalcitonin increased [Recovering/Resolving]
  - Intentional overdose [Unknown]
  - Vomiting [Recovered/Resolved]
  - Suicide attempt [Unknown]
